FAERS Safety Report 24048016 (Version 1)
Quarter: 2024Q3

REPORT INFORMATION
  Report Type: Spontaneous
  Country: ES (occurrence: ES)
  Receive Date: 20240703
  Receipt Date: 20240703
  Transmission Date: 20241017
  Serious: Yes (Hospitalization)
  Sender: STRIDES
  Company Number: ES-STRIDES ARCOLAB LIMITED-2024SP007835

PATIENT
  Age: 26 Year
  Sex: Male
  Weight: 67 kg

DRUGS (1)
  1. DISULFIRAM [Suspect]
     Active Substance: DISULFIRAM
     Indication: Alcohol use disorder
     Dosage: 250 MILLIGRAM, QD
     Route: 065
     Dates: start: 202305, end: 202306

REACTIONS (1)
  - Mania [Recovered/Resolved]

NARRATIVE: CASE EVENT DATE: 20230101
